FAERS Safety Report 16203827 (Version 1)
Quarter: 2019Q2

REPORT INFORMATION
  Report Type: Spontaneous
  Country: CA (occurrence: CA)
  Receive Date: 20190416
  Receipt Date: 20190416
  Transmission Date: 20190711
  Serious: Yes (Disabling, Other)
  Sender: FDA-Public Use
  Company Number: CA-BAYER-2019-076745

PATIENT
  Age: 22 Year
  Sex: Female
  Weight: 68.03 kg

DRUGS (1)
  1. YASMIN [Suspect]
     Active Substance: DROSPIRENONE\ETHINYL ESTRADIOL
     Indication: CONTRACEPTION
     Dosage: 1 DF, QD
     Route: 048

REACTIONS (6)
  - Deafness [Unknown]
  - Headache [Unknown]
  - Pain in extremity [Unknown]
  - Blindness [Unknown]
  - Blood pressure decreased [Unknown]
  - Migraine [Unknown]
